FAERS Safety Report 23393919 (Version 17)
Quarter: 2024Q2

REPORT INFORMATION
  Report Type: Spontaneous
  Country: IN (occurrence: IN)
  Receive Date: 20240111
  Receipt Date: 20240628
  Transmission Date: 20240716
  Serious: Yes (Other)
  Sender: FDA-Public Use
  Company Number: IN-PFIZER INC-PV202300178659

PATIENT
  Age: 53 Year
  Sex: Male
  Weight: 63 kg

DRUGS (14)
  1. LORLATINIB [Suspect]
     Active Substance: LORLATINIB
     Indication: Non-small cell lung cancer stage IV
     Dosage: 50 MG, 1X/DAY
     Route: 048
     Dates: start: 20231024
  2. LORLATINIB [Suspect]
     Active Substance: LORLATINIB
     Dosage: 75 MG, 1X/DAY
     Route: 048
  3. LORLATINIB [Suspect]
     Active Substance: LORLATINIB
     Dosage: 100 MG, 1X/DAY
     Route: 048
     Dates: start: 20231116
  4. LORLATINIB [Suspect]
     Active Substance: LORLATINIB
     Dosage: 75 MG, 1X/DAY
     Route: 048
  5. LORLATINIB [Suspect]
     Active Substance: LORLATINIB
     Dosage: 100 MG, DAILY
     Route: 048
  6. LORLATINIB [Suspect]
     Active Substance: LORLATINIB
     Dosage: 75 MG, 1X/DAY
     Route: 048
  7. LEVOTHYROXINE [Concomitant]
     Active Substance: LEVOTHYROXINE\LEVOTHYROXINE SODIUM
     Indication: Thyroid disorder
     Dosage: 50 MG
     Dates: start: 20231106
  8. ZOLPIDEM TARTRATE [Concomitant]
     Active Substance: ZOLPIDEM TARTRATE
     Dosage: UNK
  9. ATORVASTATIN [Concomitant]
     Active Substance: ATORVASTATIN
     Dosage: UNK
  10. ATORVASTATIN CALCIUM [Concomitant]
     Active Substance: ATORVASTATIN CALCIUM
     Indication: Blood cholesterol abnormal
     Dosage: 40 MG
     Dates: start: 20231106
  11. LIVOGEN [SACCHARATED IRON OXIDE] [Concomitant]
     Indication: Iron deficiency
     Dosage: 1-1
     Dates: start: 20231106
  12. IRON [Concomitant]
     Active Substance: IRON
  13. CALCIUM [Concomitant]
     Active Substance: CALCIUM
  14. TURKEY TAIL MUSHROOM [Concomitant]
     Dosage: UNK

REACTIONS (54)
  - Infection [Unknown]
  - Postoperative wound infection [Recovering/Resolving]
  - Neoplasm progression [Recovered/Resolved]
  - Blood cholesterol increased [Not Recovered/Not Resolved]
  - Muscle atrophy [Not Recovered/Not Resolved]
  - Blister [Recovered/Resolved]
  - Asthenia [Recovering/Resolving]
  - Fatigue [Not Recovered/Not Resolved]
  - Memory impairment [Unknown]
  - Thinking abnormal [Not Recovered/Not Resolved]
  - Nausea [Not Recovered/Not Resolved]
  - Anxiety [Unknown]
  - Dyspnoea exertional [Not Recovered/Not Resolved]
  - Neck pain [Unknown]
  - Musculoskeletal chest pain [Unknown]
  - Hunger [Not Recovered/Not Resolved]
  - Blood uric acid increased [Not Recovered/Not Resolved]
  - Nail discolouration [Recovered/Resolved]
  - Red blood cell sedimentation rate increased [Not Recovered/Not Resolved]
  - Throat irritation [Recovering/Resolving]
  - Dysphagia [Recovering/Resolving]
  - Sleep-related hypoventilation [Recovering/Resolving]
  - Abdominal discomfort [Recovered/Resolved]
  - Food poisoning [Recovered/Resolved]
  - Nasopharyngitis [Unknown]
  - Oedema peripheral [Recovered/Resolved]
  - Hypotonia [Unknown]
  - Mood swings [Unknown]
  - Body height decreased [Unknown]
  - Dysphonia [Unknown]
  - Oropharyngeal pain [Unknown]
  - Dysarthria [Unknown]
  - Furuncle [Recovered/Resolved]
  - Lung disorder [Recovering/Resolving]
  - Tongue disorder [Unknown]
  - Gastrooesophageal reflux disease [Unknown]
  - Blood glucose increased [Unknown]
  - Glycosylated haemoglobin increased [Unknown]
  - Stress [Unknown]
  - Dyspnoea [Not Recovered/Not Resolved]
  - Dysstasia [Unknown]
  - Pulmonary pain [Unknown]
  - Back pain [Unknown]
  - Emotional disorder [Unknown]
  - Onychoclasis [Recovered/Resolved]
  - Muscle spasms [Recovered/Resolved]
  - Myalgia [Recovered/Resolved]
  - Anger [Not Recovered/Not Resolved]
  - Asthenia [Recovering/Resolving]
  - Hyperhidrosis [Not Recovered/Not Resolved]
  - Axillary pain [Unknown]
  - Chest discomfort [Recovered/Resolved]
  - Respiratory tract congestion [Recovered/Resolved]
  - Musculoskeletal stiffness [Recovering/Resolving]

NARRATIVE: CASE EVENT DATE: 20230101
